FAERS Safety Report 16106164 (Version 2)
Quarter: 2019Q2

REPORT INFORMATION
  Report Type: Spontaneous
  Country: DE (occurrence: DE)
  Receive Date: 20190322
  Receipt Date: 20190402
  Transmission Date: 20190711
  Serious: Yes (Hospitalization)
  Sender: FDA-Public Use
  Company Number: DE-BAYER-2019-055688

PATIENT
  Age: 33 Year
  Sex: Female
  Weight: 59 kg

DRUGS (1)
  1. JAYDESS [Suspect]
     Active Substance: LEVONORGESTREL
     Route: 015

REACTIONS (14)
  - Abscess drainage [Recovered/Resolved]
  - Personal relationship issue [Unknown]
  - Conversion disorder [Recovering/Resolving]
  - Ovarian haematoma [Unknown]
  - Hidradenitis [Recovering/Resolving]
  - Alopecia [Recovering/Resolving]
  - Pelvic pain [Recovering/Resolving]
  - Abdominal tenderness [Recovering/Resolving]
  - Irritability [Recovering/Resolving]
  - Loss of libido [Recovering/Resolving]
  - Adnexa uteri pain [Unknown]
  - Adverse event [Unknown]
  - Sexual relationship change [Unknown]
  - Subcutaneous abscess [Recovering/Resolving]

NARRATIVE: CASE EVENT DATE: 2017
